FAERS Safety Report 5835054-9 (Version None)
Quarter: 2008Q3

REPORT INFORMATION
  Report Type: 
  Country: None (occurrence: None)
  Receive Date: 20080805
  Receipt Date: 20080805
  Transmission Date: 20090109
  Serious: Yes (Hospitalization)
  Sender: FDA-Public Use
  Company Number: None

PATIENT
  Sex: Female
  Weight: 90.45 kg

DRUGS (6)
  1. TEMOZOLOMIDE [Suspect]
     Dosage: 4200 MG
  2. CLONAZEPAM [Concomitant]
  3. KEPPRA [Concomitant]
  4. LORAZEPAM [Concomitant]
  5. MULTIVITAMINS W-IRON [Concomitant]
  6. ZOFRAN [Concomitant]

REACTIONS (2)
  - CD4 LYMPHOCYTES DECREASED [None]
  - LYMPHOPENIA [None]
